FAERS Safety Report 11402541 (Version 1)
Quarter: 2015Q3

REPORT INFORMATION
  Report Type: Spontaneous
  Country: US (occurrence: None)
  Receive Date: 20150820
  Receipt Date: 20150820
  Transmission Date: 20151125
  Serious: No
  Sender: FDA-Public Use
  Company Number: None

PATIENT
  Age: 66 Year
  Sex: Male
  Weight: 95 kg

DRUGS (2)
  1. INFUSION PUMP [Suspect]
     Active Substance: DEVICE
  2. KCL [Suspect]
     Active Substance: POTASSIUM CHLORIDE

REACTIONS (2)
  - Device infusion issue [None]
  - Incorrect drug administration rate [None]

NARRATIVE: CASE EVENT DATE: 20150817
